APPROVED DRUG PRODUCT: TRIAMCINOLONE ACETONIDE
Active Ingredient: TRIAMCINOLONE ACETONIDE
Strength: 0.5%
Dosage Form/Route: OINTMENT;TOPICAL
Application: A211315 | Product #002
Applicant: AUROBINDO PHARMA LTD
Approved: Mar 18, 2020 | RLD: No | RS: No | Type: DISCN